FAERS Safety Report 24437528 (Version 2)
Quarter: 2024Q4

REPORT INFORMATION
  Report Type: Spontaneous
  Country: CN (occurrence: CN)
  Receive Date: 20241015
  Receipt Date: 20241115
  Transmission Date: 20250115
  Serious: Yes (Hospitalization)
  Sender: ALEXION PHARMACEUTICALS
  Company Number: CN-ASTRAZENECA-202410CHN006265CN

PATIENT
  Age: 45 Year
  Weight: 50 kg

DRUGS (6)
  1. METOPROLOL [Suspect]
     Active Substance: METOPROLOL
     Indication: Cardiac failure acute
     Dosage: 6.25 MILLIGRAM, BID
  2. METOPROLOL [Suspect]
     Active Substance: METOPROLOL
     Dosage: 6.25 MILLIGRAM, BID
  3. METOPROLOL [Suspect]
     Active Substance: METOPROLOL
     Dosage: 6.25 MILLIGRAM, BID
  4. METOPROLOL [Suspect]
     Active Substance: METOPROLOL
     Dosage: 6.25 MILLIGRAM, BID
  5. VALSARTAN [Suspect]
     Active Substance: VALSARTAN
     Indication: Cardiac failure acute
     Dosage: 20 MILLIGRAM, Q4W
  6. VALSARTAN [Suspect]
     Active Substance: VALSARTAN
     Dosage: 20 MILLIGRAM, Q4W

REACTIONS (1)
  - Hypotension [Recovering/Resolving]
